FAERS Safety Report 14708707 (Version 2)
Quarter: 2018Q2

REPORT INFORMATION
  Report Type: Spontaneous
  Country: BG (occurrence: BG)
  Receive Date: 20180403
  Receipt Date: 20180501
  Transmission Date: 20180711
  Serious: Yes (Other)
  Sender: FDA-Public Use
  Company Number: BG-BAYER-2018-059448

PATIENT
  Age: 67 Year
  Sex: Male

DRUGS (4)
  1. RADIUM-223 DICHLORIDE [Suspect]
     Active Substance: RADIUM RA-223 DICHLORIDE
     Indication: PROSTATE CANCER
     Dosage: 8.8MBQ PER
  2. RADIUM-223 DICHLORIDE [Suspect]
     Active Substance: RADIUM RA-223 DICHLORIDE
     Indication: PROSTATE CANCER
     Dosage: 8.8MBQ PER
  3. RADIUM-223 DICHLORIDE [Suspect]
     Active Substance: RADIUM RA-223 DICHLORIDE
     Indication: PROSTATE CANCER
     Dosage: 8.8MBQ PER APPLICATION
     Route: 042
     Dates: start: 20170425, end: 20170719
  4. RADIUM-223 DICHLORIDE [Suspect]
     Active Substance: RADIUM RA-223 DICHLORIDE
     Indication: PROSTATE CANCER
     Dosage: 8.8MBQ PER

REACTIONS (3)
  - Thrombocytopenia [None]
  - Anaemia [None]
  - Prostate cancer [None]

NARRATIVE: CASE EVENT DATE: 201707
